FAERS Safety Report 16758934 (Version 1)
Quarter: 2019Q3

REPORT INFORMATION
  Report Type: Report from Study
  Country: AU (occurrence: AU)
  Receive Date: 20190830
  Receipt Date: 20190830
  Transmission Date: 20191005
  Serious: Yes (Other)
  Sender: FDA-Public Use
  Company Number: AU-GLAXOSMITHKLINE-AU2019APC156786

PATIENT

DRUGS (1)
  1. MEPOLIZUMAB [Suspect]
     Active Substance: MEPOLIZUMAB
     Indication: ASTHMA
     Dosage: 100 MG, UNK
     Route: 058
     Dates: start: 20190826

REACTIONS (5)
  - Abdominal pain lower [Unknown]
  - Pain in extremity [Not Recovered/Not Resolved]
  - Diverticulitis [Recovered/Resolved]
  - Pain [Not Recovered/Not Resolved]
  - Colonoscopy [Unknown]

NARRATIVE: CASE EVENT DATE: 201908
